FAERS Safety Report 22679362 (Version 3)
Quarter: 2024Q4

REPORT INFORMATION
  Report Type: Spontaneous
  Country: JP (occurrence: JP)
  Receive Date: 20230707
  Receipt Date: 20241107
  Transmission Date: 20250115
  Serious: Yes (Death, Other)
  Sender: MERCK
  Company Number: JP-MSD-2306JPN004399J

PATIENT
  Age: 75 Year
  Sex: Female
  Weight: 47 kg

DRUGS (4)
  1. KEYTRUDA [Suspect]
     Active Substance: PEMBROLIZUMAB
     Indication: Malignant melanoma stage IV
     Dosage: 200 MILLIGRAM, Q3W
     Route: 041
     Dates: start: 20200702, end: 20210412
  2. CORTRIL [Suspect]
     Active Substance: HYDROCORTISONE
     Indication: Adrenal insufficiency
     Dosage: VARYING, USUALLY 10 MG TWICE/DAY
     Route: 048
     Dates: start: 20190621, end: 20210621
  3. CLARITHROMYCIN [Suspect]
     Active Substance: CLARITHROMYCIN
     Indication: Chronic sinusitis
     Dosage: 200 MILLIGRAM, BID
     Route: 048
     Dates: start: 20200417, end: 20210428
  4. HERBALS [Suspect]
     Active Substance: HERBALS
     Dosage: 24 MILLIGRAM, TID
     Route: 048
     Dates: start: 20201109, end: 20210428

REACTIONS (5)
  - Malignant neoplasm progression [Fatal]
  - Dementia [Fatal]
  - Decreased activity [Fatal]
  - Long QT syndrome [Recovering/Resolving]
  - Adrenal insufficiency [Unknown]

NARRATIVE: CASE EVENT DATE: 20210412
